FAERS Safety Report 6678177-7 (Version None)
Quarter: 2010Q2

REPORT INFORMATION
  Report Type: 
  Country: None (occurrence: None)
  Receive Date: 20100409
  Receipt Date: 20100409
  Transmission Date: 20101027
  Serious: Yes (Other)
  Sender: FDA-Public Use
  Company Number: None

PATIENT
  Age: 69 Year
  Sex: Female
  Weight: 74.8435 kg

DRUGS (1)
  1. APRISO [Suspect]
     Indication: COLITIS ULCERATIVE
     Dosage: .375GM CAP 4 CAPSULES EVERY A.M. BY MOUTH
     Route: 048
     Dates: start: 20100219

REACTIONS (7)
  - ABDOMINAL PAIN [None]
  - DIARRHOEA [None]
  - MIGRAINE [None]
  - NAUSEA [None]
  - OROPHARYNGEAL PAIN [None]
  - RASH ERYTHEMATOUS [None]
  - URTICARIA [None]
